FAERS Safety Report 17258710 (Version 2)
Quarter: 2020Q3

REPORT INFORMATION
  Report Type: Spontaneous
  Country: US (occurrence: US)
  Receive Date: 20200110
  Receipt Date: 20200724
  Transmission Date: 20201102
  Serious: Yes (Other)
  Sender: FDA-Public Use
  Company Number: US-ASTRAZENECA-2020SE03677

PATIENT
  Age: 51 Year
  Sex: Male
  Weight: 93.9 kg

DRUGS (33)
  1. NEXIUM [Suspect]
     Active Substance: ESOMEPRAZOLE MAGNESIUM
     Indication: GASTROOESOPHAGEAL REFLUX DISEASE
     Route: 048
     Dates: start: 2004, end: 2015
  2. NEXIUM [Suspect]
     Active Substance: ESOMEPRAZOLE MAGNESIUM
     Indication: GASTROOESOPHAGEAL REFLUX DISEASE
     Route: 048
     Dates: start: 20040129
  3. SUMATRIPTAN. [Concomitant]
     Active Substance: SUMATRIPTAN
     Indication: MIGRAINE
     Dates: start: 2015, end: 2017
  4. NORVASC [Concomitant]
     Active Substance: AMLODIPINE BESYLATE
  5. IMITREX [Concomitant]
     Active Substance: SUMATRIPTAN SUCCINATE
  6. FLAGYL [Concomitant]
     Active Substance: METRONIDAZOLE\METRONIDAZOLE HYDROCHLORIDE
  7. AMLODIPINE [Concomitant]
     Active Substance: AMLODIPINE BESYLATE
     Indication: HYPERTENSION
     Dates: start: 2016, end: 2017
  8. PANTOPRAZOLE [Concomitant]
     Active Substance: PANTOPRAZOLE
  9. KLOR?CON [Concomitant]
     Active Substance: POTASSIUM CHLORIDE
  10. ZOLPIDEM [Concomitant]
     Active Substance: ZOLPIDEM TARTRATE
  11. LEVOFLOXACIN. [Concomitant]
     Active Substance: LEVOFLOXACIN
  12. VALTREX [Concomitant]
     Active Substance: VALACYCLOVIR HYDROCHLORIDE
  13. NEXIUM [Suspect]
     Active Substance: ESOMEPRAZOLE MAGNESIUM
     Indication: GASTROOESOPHAGEAL REFLUX DISEASE
     Route: 048
     Dates: start: 200401, end: 201709
  14. OMEPRAZOLE. [Concomitant]
     Active Substance: OMEPRAZOLE
  15. VALACYCLOVIR [Concomitant]
     Active Substance: VALACYCLOVIR HYDROCHLORIDE
  16. CHLORTHALIDONE. [Concomitant]
     Active Substance: CHLORTHALIDONE
     Indication: HYPERTENSION
     Dates: start: 2016, end: 2017
  17. ZOVIRAX [Concomitant]
     Active Substance: ACYCLOVIR
  18. PIROXICAM. [Concomitant]
     Active Substance: PIROXICAM
  19. LUNESTA [Concomitant]
     Active Substance: ESZOPICLONE
  20. ATENOLOL. [Concomitant]
     Active Substance: ATENOLOL
  21. METRONIDAZOLE. [Concomitant]
     Active Substance: METRONIDAZOLE
  22. MIRAPEX [Concomitant]
     Active Substance: PRAMIPEXOLE DIHYDROCHLORIDE
  23. HYDROCODONE [Concomitant]
     Active Substance: HYDROCODONE
  24. DIVALPROEX [Concomitant]
     Active Substance: DIVALPROEX SODIUM
  25. VIRAPAMIL [Concomitant]
  26. POTASSIUM [Concomitant]
     Active Substance: POTASSIUM
  27. FLOVENT [Concomitant]
     Active Substance: FLUTICASONE PROPIONATE
  28. AMBIEN [Concomitant]
     Active Substance: ZOLPIDEM TARTRATE
  29. PREVACID [Concomitant]
     Active Substance: LANSOPRAZOLE
  30. ACYCLOVIR. [Concomitant]
     Active Substance: ACYCLOVIR
  31. SUMATRIPTAN. [Concomitant]
     Active Substance: SUMATRIPTAN
  32. NORCO [Concomitant]
     Active Substance: ACETAMINOPHEN\HYDROCODONE BITARTRATE
  33. LACTOBACILLUS ACIOPHULUS [Concomitant]

REACTIONS (2)
  - Renal failure [Unknown]
  - Chronic kidney disease [Not Recovered/Not Resolved]

NARRATIVE: CASE EVENT DATE: 2015
